FAERS Safety Report 10229509 (Version 1)
Quarter: 2014Q2

REPORT INFORMATION
  Report Type: Report from Study
  Country: US (occurrence: US)
  Receive Date: 20140611
  Receipt Date: 20140611
  Transmission Date: 20141212
  Serious: Yes (Other)
  Sender: FDA-Public Use
  Company Number: US-ROCHE-1415891

PATIENT
  Age: 7 Year
  Sex: Female
  Weight: 55.6 kg

DRUGS (3)
  1. NUTROPIN AQ [Suspect]
     Indication: TURNER^S SYNDROME
     Route: 058
     Dates: start: 20100407, end: 2013
  2. LEVOTHYROXINE [Concomitant]
     Route: 048
  3. DIAZOXIDE [Concomitant]

REACTIONS (4)
  - Insulin-like growth factor increased [Unknown]
  - Blood thyroid stimulating hormone increased [Unknown]
  - Headache [Unknown]
  - Weight increased [Unknown]
